FAERS Safety Report 5139237-5 (Version None)
Quarter: 2006Q4

REPORT INFORMATION
  Report Type: 
  Country: None (occurrence: None)
  Receive Date: 20061030
  Receipt Date: 20060719
  Transmission Date: 20070319
  Serious: No
  Sender: FDA-Public Use
  Company Number: US-GLAXOSMITHKLINE-A0612834A

PATIENT
  Age: 85 Year
  Sex: Female

DRUGS (7)
  1. ADVAIR HFA [Suspect]
     Indication: ASTHMA
     Dosage: 1BLS TWICE PER DAY
     Route: 055
     Dates: start: 20060426
  2. SPIRIVA [Concomitant]
  3. DIOVAN [Concomitant]
  4. DYAZIDE [Concomitant]
  5. THYROID TAB [Concomitant]
  6. ACTONEL [Concomitant]
  7. HEART MEDICATION [Concomitant]

REACTIONS (1)
  - DYSPHONIA [None]
